FAERS Safety Report 24355594 (Version 1)
Quarter: 2024Q3

REPORT INFORMATION
  Report Type: Spontaneous
  Country: BR (occurrence: BR)
  Receive Date: 20240924
  Receipt Date: 20240924
  Transmission Date: 20241016
  Serious: Yes (Other)
  Sender: CIPLA
  Company Number: BR-CIPLA LTD.-2024BR10365

PATIENT

DRUGS (5)
  1. GEFITINIB [Interacting]
     Active Substance: GEFITINIB
     Indication: Non-small cell lung cancer metastatic
     Dosage: 250 MG/DAY
     Route: 048
     Dates: start: 2022, end: 2022
  2. GEFITINIB [Interacting]
     Active Substance: GEFITINIB
     Dosage: 250 MG/DAY (RE-INTRODUCED)
     Route: 048
     Dates: start: 2022
  3. DOXYCYCLINE [Interacting]
     Active Substance: DOXYCYCLINE\DOXYCYCLINE HYCLATE
     Indication: Urinary tract infection
     Dosage: UNK, BID (DAILY)
     Route: 065
     Dates: start: 2022
  4. ESTRIOL [Concomitant]
     Active Substance: ESTRIOL
     Indication: Urinary tract infection
     Dosage: UNK
     Route: 065
  5. METAMIZOLE [Concomitant]
     Active Substance: METAMIZOLE
     Indication: Analgesic therapy
     Dosage: 500 MG, UNK
     Route: 065

REACTIONS (5)
  - Drug interaction [Unknown]
  - Rash maculo-papular [Recovering/Resolving]
  - Skin hyperpigmentation [Recovering/Resolving]
  - Condition aggravated [Unknown]
  - Dermatitis acneiform [Unknown]

NARRATIVE: CASE EVENT DATE: 20220101
